FAERS Safety Report 22633337 (Version 3)
Quarter: 2023Q4

REPORT INFORMATION
  Report Type: Report from Study
  Country: US (occurrence: US)
  Receive Date: 20230623
  Receipt Date: 20231026
  Transmission Date: 20240110
  Serious: Yes (Hospitalization, Other)
  Sender: FDA-Public Use
  Company Number: US-ASTELLAS-2023US018778

PATIENT
  Age: 84 Year
  Sex: Female

DRUGS (3)
  1. GILTERITINIB [Suspect]
     Active Substance: GILTERITINIB
     Indication: Myelodysplastic syndrome
     Route: 048
     Dates: start: 20230511
  2. GILTERITINIB [Suspect]
     Active Substance: GILTERITINIB
     Route: 048
  3. VENCLEXTA [Concomitant]
     Active Substance: VENETOCLAX
     Indication: Myelodysplastic syndrome
     Dosage: 200 MG, ONCE DAILY (ON DAYS 1-14 OF 28 DAY CYCLE)
     Route: 065
     Dates: start: 20230815

REACTIONS (3)
  - Platelet count decreased [Recovering/Resolving]
  - Haemorrhage [Unknown]
  - Off label use [Unknown]

NARRATIVE: CASE EVENT DATE: 20230511
